FAERS Safety Report 8775568 (Version 1)
Quarter: 2012Q4

REPORT INFORMATION
  Report Type: Report from Study
  Country: CH (occurrence: DE)
  Receive Date: 20120910
  Receipt Date: 20120910
  Transmission Date: 20130627
  Serious: Yes (Life-Threatening, Hospitalization)
  Sender: FDA-Public Use
  Company Number: DE-BRISTOL-MYERS SQUIBB COMPANY-16922114

PATIENT
  Age: 42 Year
  Sex: Male
  Weight: 132 kg

DRUGS (4)
  1. CETUXIMAB [Suspect]
     Indication: NON-SMALL CELL LUNG CANCER
     Dosage: Last dose on 22AUG2012.No of infusion:10
     Route: 042
     Dates: start: 20120605, end: 20120822
  2. CISPLATIN FOR INJ [Suspect]
     Indication: NON-SMALL CELL LUNG CANCER
     Dosage: Last dose on 08AUG2012.No of inf:4
     Route: 042
     Dates: start: 20120605, end: 20120808
  3. CILENGITIDE [Suspect]
     Indication: NON-SMALL CELL LUNG CANCER
     Dosage: Last dose on 22AUG2012.No of inf:12
     Route: 042
     Dates: start: 20120605, end: 20120822
  4. GEMCITABINE [Suspect]
     Indication: NON-SMALL CELL LUNG CANCER
     Dosage: 1 and 8 th day of 3 week cycle,Last dose on 15AUG2012.No of inf:8
     Route: 042
     Dates: start: 20120605, end: 20120815

REACTIONS (1)
  - Pulmonary embolism [Recovered/Resolved]
